FAERS Safety Report 10060521 (Version 1)
Quarter: 2014Q2

REPORT INFORMATION
  Report Type: Spontaneous
  Country: US (occurrence: US)
  Receive Date: 20140404
  Receipt Date: 20140404
  Transmission Date: 20141212
  Serious: No
  Sender: FDA-Public Use
  Company Number: US-PFIZER INC-2014095304

PATIENT
  Age: 54 Year
  Sex: Female
  Weight: 49.89 kg

DRUGS (4)
  1. NEURONTIN [Suspect]
     Indication: FIBROMYALGIA
     Dosage: HALF TABLET OF 600 MG, 2X/DAY
     Dates: start: 2012
  2. NEURONTIN [Suspect]
     Indication: ARTHRITIS
     Dosage: 600 MG, 2X/DAY
  3. NEURONTIN [Suspect]
     Dosage: 1200 MG, 2X/DAY
  4. NEURONTIN [Suspect]
     Dosage: 1200 MG, 3X/DAY

REACTIONS (2)
  - Intentional product misuse [Unknown]
  - Drug ineffective [Unknown]
